FAERS Safety Report 6451796-9 (Version None)
Quarter: 2009Q4

REPORT INFORMATION
  Report Type: 
  Country: None (occurrence: None)
  Receive Date: 20091117
  Receipt Date: 20091102
  Transmission Date: 20100525
  Serious: Yes (Hospitalization)
  Sender: FDA-Public Use
  Company Number: AUR-APL-2009-01159

PATIENT
  Age: 6 Month
  Sex: Male

DRUGS (2)
  1. AMOXICILLIN [Suspect]
     Indication: RESPIRATORY DISORDER
  2. DECONGESTANT CONTAINING PSEUDOEPHEDRINE [Concomitant]

REACTIONS (4)
  - CHEILITIS [None]
  - CONJUNCTIVITIS [None]
  - LYMPHADENOPATHY [None]
  - URTICARIA [None]
